FAERS Safety Report 22029604 (Version 1)
Quarter: 2023Q1

REPORT INFORMATION
  Report Type: Spontaneous
  Country: US (occurrence: None)
  Receive Date: 20230221
  Receipt Date: 20230221
  Transmission Date: 20230417
  Serious: Yes (Hospitalization)
  Sender: FDA-Public Use
  Company Number: None

PATIENT
  Sex: Female
  Weight: 63.5 kg

DRUGS (19)
  1. BRAFTOVI [Suspect]
     Active Substance: ENCORAFENIB
     Indication: Malignant melanoma
     Dosage: FREQUENCY : DAILY;?
     Route: 048
  2. MEKTOVI [Suspect]
     Active Substance: BINIMETINIB
     Indication: Malignant melanoma
     Dosage: FREQUENCY : TWICE A DAY;?
     Route: 048
  3. CLONAZEPAM [Concomitant]
  4. CYASNOCOBALAMIN [Concomitant]
  5. CYMBALTA [Concomitant]
  6. DULOXETINE [Concomitant]
  7. DEPAKOTE [Concomitant]
  8. DIVALPROEX [Concomitant]
  9. ERGOCALCIFEROL [Concomitant]
  10. FLONASE SENSIMIST [Concomitant]
  11. KLONOPIN [Concomitant]
  12. METHOCARBAMOL [Concomitant]
  13. NORCO [Concomitant]
  14. PANTOPRAZOLE [Concomitant]
  15. PROCHLORPERAZINE [Concomitant]
  16. SUMATRIPTAN [Concomitant]
  17. TRAZODONE [Concomitant]
  18. VITAMIN B12 [Concomitant]
  19. VITAMIN D3 [Concomitant]

REACTIONS (4)
  - Haemoglobin decreased [None]
  - Urinary tract infection [None]
  - Haematological infection [None]
  - Cystitis [None]
